FAERS Safety Report 15717348 (Version 3)
Quarter: 2019Q1

REPORT INFORMATION
  Report Type: Spontaneous
  Country: US (occurrence: US)
  Receive Date: 20181213
  Receipt Date: 20190318
  Transmission Date: 20190417
  Serious: Yes (Hospitalization)
  Sender: FDA-Public Use
  Company Number: US-BRISTOL-MYERS SQUIBB COMPANY-BMS-2018-115453

PATIENT
  Sex: Female
  Weight: 63.5 kg

DRUGS (1)
  1. ORENCIA [Suspect]
     Active Substance: ABATACEPT
     Indication: RHEUMATOID ARTHRITIS
     Dosage: 750 MG, IV OVER 1 HOUR EVERY 4WEEKS AND AS DIRECTED
     Route: 042
     Dates: start: 201811

REACTIONS (13)
  - Accident [Unknown]
  - Influenza [Unknown]
  - Dizziness [Unknown]
  - Hypoaesthesia [Unknown]
  - Back pain [Unknown]
  - Gastric disorder [Unknown]
  - Pain [Unknown]
  - Abdominal pain upper [Unknown]
  - Wrist fracture [Unknown]
  - Malaise [Unknown]
  - Hand fracture [Unknown]
  - Sinusitis [Unknown]
  - Headache [Unknown]
